FAERS Safety Report 6636757-9 (Version None)
Quarter: 2010Q1

REPORT INFORMATION
  Report Type: 
  Country: None (occurrence: None)
  Receive Date: 20100316
  Receipt Date: 20100312
  Transmission Date: 20100710
  Serious: Yes (Hospitalization)
  Sender: FDA-Public Use
  Company Number: IN-ABBOTT-10P-078-0630580-00

PATIENT
  Age: 12 Year
  Sex: Female
  Weight: 35 kg

DRUGS (5)
  1. VALPROIC ACID [Suspect]
     Indication: COMPLEX PARTIAL SEIZURES
  2. VALPROIC ACID [Suspect]
     Indication: CONVULSION
  3. CLOBAZAM [Concomitant]
     Indication: COMPLEX PARTIAL SEIZURES
  4. CLOBAZAM [Concomitant]
     Indication: CONVULSION
  5. CARBAMAZEPINE [Concomitant]
     Indication: CONVULSION

REACTIONS (1)
  - ABNORMAL BEHAVIOUR [None]
